FAERS Safety Report 20526141 (Version 4)
Quarter: 2022Q2

REPORT INFORMATION
  Report Type: Report from Study
  Country: FR (occurrence: FR)
  Receive Date: 20220228
  Receipt Date: 20220623
  Transmission Date: 20220721
  Serious: Yes (Congenital Anomaly, Other)
  Sender: FDA-Public Use
  Company Number: None

PATIENT
  Age: 2 Week
  Sex: Male
  Weight: 2.01 kg

DRUGS (9)
  1. FLUCONAZOLE [Suspect]
     Active Substance: FLUCONAZOLE
     Indication: Neurocryptococcosis
     Dosage: 600 MILLIGRAM, QD
     Route: 064
     Dates: start: 20191202, end: 202001
  2. PANTOPRAZOLE [Suspect]
     Active Substance: PANTOPRAZOLE
     Dosage: 20 MILLIGRAM, QD
     Route: 064
     Dates: start: 20191202, end: 202001
  3. RAMIPRIL [Suspect]
     Active Substance: RAMIPRIL
     Dosage: 4 MILLIGRAM, QD
     Route: 064
     Dates: start: 20191202, end: 202001
  4. ETHAMBUTOL HYDROCHLORIDE [Suspect]
     Active Substance: ETHAMBUTOL HYDROCHLORIDE
     Indication: Mycobacterium avium complex infection
     Dosage: 750 MILLIGRAM, QD
     Route: 064
     Dates: start: 20191202, end: 202002
  5. CLARITHROMYCIN [Suspect]
     Active Substance: CLARITHROMYCIN
     Indication: Mycobacterium avium complex infection
     Dosage: 500 MILLIGRAM, QD
     Route: 064
     Dates: start: 20191202, end: 202002
  6. TRUVADA [Suspect]
     Active Substance: EMTRICITABINE\TENOFOVIR DISOPROXIL FUMARATE
     Indication: HIV infection
     Dosage: 200/245 MILLIGRAM, QD
     Route: 064
     Dates: start: 20191202, end: 20200803
  7. ATOVAQUONE [Suspect]
     Active Substance: ATOVAQUONE
     Indication: Pneumocystis jirovecii pneumonia
     Dosage: 1500 MILLIGRAM, QD
     Route: 064
     Dates: start: 20191202, end: 202001
  8. ISENTRESS [Suspect]
     Active Substance: RALTEGRAVIR POTASSIUM
     Indication: HIV infection
     Dosage: 800 MILLIGRAM, QD
     Route: 064
     Dates: start: 20191202, end: 20200803
  9. EMTRICITABINE\TENOFOVIR DISOPROXIL [Suspect]
     Active Substance: EMTRICITABINE\TENOFOVIR DISOPROXIL
     Indication: HIV infection
     Dosage: 445 MILLIGRAM, QD
     Route: 064
     Dates: start: 20191119, end: 20200803

REACTIONS (3)
  - Maternal exposure during pregnancy [Unknown]
  - Phalangeal hypoplasia [Not Recovered/Not Resolved]
  - Congenital foot malformation [Not Recovered/Not Resolved]

NARRATIVE: CASE EVENT DATE: 20191119
